FAERS Safety Report 5147853-X (Version None)
Quarter: 2006Q4

REPORT INFORMATION
  Report Type: 
  Country: None (occurrence: None)
  Receive Date: 20060918
  Receipt Date: 20051026
  Transmission Date: 20070319
  Serious: Yes (Other)
  Sender: FDA-Public Use
  Company Number: US-JNJFOC-20050704996

PATIENT
  Age: 43 Year
  Sex: Female
  Weight: 58.9676 kg

DRUGS (2)
  1. TOPAMAX [Suspect]
     Indication: CONVULSION
     Dosage: SEE IMAGE
     Dates: start: 20040701, end: 20050701
  2. TOPAMAX [Suspect]
     Indication: CONVULSION
     Dosage: SEE IMAGE
     Dates: start: 20050701

REACTIONS (1)
  - CONVULSION [None]
